FAERS Safety Report 8781246 (Version 2)
Quarter: 2012Q4

REPORT INFORMATION
  Report Type: 
  Country: JP (occurrence: JP)
  Receive Date: 20120913
  Receipt Date: 20121003
  Transmission Date: 20130627
  Serious: Yes (Other)
  Sender: FDA-Public Use
  Company Number: JP-009507513-1209JPN000220

PATIENT
  Age: 35 Year
  Sex: Male
  Weight: 65 kg

DRUGS (1)
  1. PROPECIA TABLETS 1MG [Suspect]
     Indication: ANDROGENETIC ALOPECIA
     Dosage: 1 mg, qd
     Route: 048
     Dates: start: 20120404, end: 20120817

REACTIONS (1)
  - Hepatic function abnormal [Recovered/Resolved]
